FAERS Safety Report 11885829 (Version 2)
Quarter: 2016Q1

REPORT INFORMATION
  Report Type: Spontaneous
  Country: US (occurrence: US)
  Receive Date: 20160104
  Receipt Date: 20160203
  Transmission Date: 20160526
  Serious: No
  Sender: FDA-Public Use
  Company Number: US-APOTEX-2015AP012189

PATIENT
  Sex: Female

DRUGS (1)
  1. PAXIL [Suspect]
     Active Substance: PAROXETINE HYDROCHLORIDE
     Indication: PRODUCT USED FOR UNKNOWN INDICATION
     Route: 065

REACTIONS (3)
  - Exposure during pregnancy [Unknown]
  - Skin burning sensation [Unknown]
  - Drug ineffective [Unknown]
